FAERS Safety Report 6466208-9 (Version None)
Quarter: 2009Q4

REPORT INFORMATION
  Report Type: 
  Country: None (occurrence: None)
  Receive Date: 20091202
  Receipt Date: 20091118
  Transmission Date: 20100525
  Serious: Yes (Hospitalization, Other)
  Sender: FDA-Public Use
  Company Number: PHHY2009ES50608

PATIENT
  Age: 85 Year
  Sex: Male

DRUGS (7)
  1. FORADIL [Suspect]
     Indication: CHRONIC OBSTRUCTIVE PULMONARY DISEASE
     Dosage: 12 MCG DAILY
     Dates: end: 20090129
  2. FORADIL [Interacting]
     Dosage: UNK
     Dates: end: 20090129
  3. DIGOXIN [Interacting]
     Indication: ATRIAL FIBRILLATION
     Dosage: 0.75 MG DAILY
  4. EUTIROX [Interacting]
     Indication: HYPOTHYROIDISM
     Dosage: UNK
  5. VENTOLIN [Interacting]
     Indication: CHRONIC OBSTRUCTIVE PULMONARY DISEASE
     Dosage: UNK
     Dates: end: 20090129
  6. SINTROM [Concomitant]
     Indication: ATRIAL FIBRILLATION
     Route: 048
  7. ENALAPRIL MALEATE [Concomitant]
     Indication: HYPERTENSION
     Dosage: 10 MG DAILY
     Route: 048

REACTIONS (6)
  - ATRIAL FIBRILLATION [None]
  - ATRIAL FLUTTER [None]
  - BUNDLE BRANCH BLOCK LEFT [None]
  - DRUG INTERACTION [None]
  - DRUG TOXICITY [None]
  - PNEUMONIA [None]
